FAERS Safety Report 8354294-0 (Version None)
Quarter: 2012Q2

REPORT INFORMATION
  Report Type: 
  Country: None (occurrence: None)
  Receive Date: 20120511
  Receipt Date: 20120502
  Transmission Date: 20120825
  Serious: Yes (Other)
  Sender: FDA-Public Use
  Company Number: US-ROCHE-1044454

PATIENT
  Sex: Female

DRUGS (13)
  1. BONIVA [Suspect]
     Indication: PRODUCT USED FOR UNKNOWN INDICATION
     Dates: start: 20051102
  2. FOLIC ACID [Concomitant]
  3. LISINOPRIL [Concomitant]
  4. XANAX [Concomitant]
  5. CLINDAMYCIN [Concomitant]
  6. ATORVASTATIN CALCIUM [Concomitant]
  7. CIPROFLOXACIN [Concomitant]
  8. BONIVA [Suspect]
     Dates: start: 20060213
  9. BONIVA [Suspect]
     Dates: start: 20060413
  10. LIPITOR [Concomitant]
  11. BONIVA [Suspect]
     Dates: start: 20060614
  12. PREMARIN [Concomitant]
  13. MEFLOQUINE HYDROCHLORIDE [Concomitant]

REACTIONS (1)
  - FEMUR FRACTURE [None]
